FAERS Safety Report 6528510-1 (Version None)
Quarter: 2010Q1

REPORT INFORMATION
  Report Type: 
  Country: None (occurrence: None)
  Receive Date: 20100106
  Receipt Date: 20091207
  Transmission Date: 20100710
  Serious: Yes (Hospitalization)
  Sender: FDA-Public Use
  Company Number: PHHY2009DE56329

PATIENT
  Sex: Male

DRUGS (25)
  1. STALEVO 100 [Suspect]
     Indication: PARKINSON'S DISEASE
     Dosage: 50/12.5/200 MG DAILY
     Route: 048
     Dates: start: 20080111, end: 20080124
  2. STALEVO 100 [Suspect]
     Dosage: 325 MG, TID
     Route: 048
     Dates: start: 20080125, end: 20080508
  3. REQUIP [Concomitant]
     Indication: PARKINSON'S DISEASE
     Dosage: 2 MG, QID
     Dates: start: 20060104, end: 20060509
  4. REQUIP [Concomitant]
     Dosage: 4 MG, TID
     Dates: start: 20060510, end: 20060608
  5. REQUIP [Concomitant]
     Dosage: 2 MG, TID
     Dates: start: 20060609, end: 20061107
  6. REQUIP [Concomitant]
     Dosage: 4.5 MG DAILY
     Dates: start: 20061108, end: 20061121
  7. REQUIP [Concomitant]
     Dosage: 4 MG, TID
     Dates: start: 20061122, end: 20061205
  8. REQUIP [Concomitant]
     Dosage: 5 MG, TID
     Dates: start: 20061206, end: 20080417
  9. REQUIP [Concomitant]
     Dosage: 5 MG, QD
     Dates: start: 20080509, end: 20080523
  10. DOPADURA C [Concomitant]
     Indication: PARKINSON'S DISEASE
     Dosage: 250 MG
  11. DOPADURA C [Concomitant]
     Dosage: 250 MG
     Dates: start: 20050719, end: 20060608
  12. DOPADURA C [Concomitant]
     Dosage: 250 MG
     Dates: start: 20060609, end: 20070514
  13. DOPADURA C [Concomitant]
     Dosage: 250 MG
     Dates: start: 20070515, end: 20080501
  14. DOPADURA C [Concomitant]
     Dosage: 250 MG
     Dates: start: 20071101, end: 20071101
  15. DOPADURA C [Concomitant]
     Dosage: 1000 MG
     Dates: start: 20090707, end: 20091103
  16. LEVOCOMP [Concomitant]
     Indication: PARKINSON'S DISEASE
     Dosage: UNK
     Dates: start: 20080314
  17. CARBIDOPA AND LEVODOPA [Concomitant]
     Dosage: 125 MG
     Dates: start: 20080509, end: 20080523
  18. CARBIDOPA AND LEVODOPA [Concomitant]
     Dosage: 62.5 MG
     Dates: start: 20080524, end: 20080908
  19. SELEGILINE HCL [Concomitant]
     Indication: PARKINSON'S DISEASE
     Dosage: 5 MG, QD
     Dates: start: 20071004, end: 20071101
  20. TORSEMIDE [Concomitant]
     Dosage: 10 MG
     Dates: start: 20070501, end: 20071101
  21. SALOFALK [Concomitant]
     Indication: COLITIS ULCERATIVE
     Dosage: 1000 MG, TID
     Dates: start: 20080501, end: 20090601
  22. SALOFALK [Concomitant]
     Dosage: 2 G
     Dates: start: 20090601
  23. AUGMENTIN '125' [Concomitant]
     Dosage: 1 G, QD
     Dates: start: 20090224, end: 20090302
  24. NITRENDIPIN [Concomitant]
     Dosage: 20 MG, QD
     Dates: start: 20071101
  25. AZILECT [Concomitant]

REACTIONS (2)
  - COLITIS ULCERATIVE [None]
  - DIARRHOEA [None]
